APPROVED DRUG PRODUCT: CHLORZOXAZONE
Active Ingredient: CHLORZOXAZONE
Strength: 750MG
Dosage Form/Route: TABLET;ORAL
Application: A212185 | Product #002
Applicant: GLENMARK PHARMACEUTICALS LTD
Approved: May 26, 2020 | RLD: No | RS: No | Type: DISCN